FAERS Safety Report 17690469 (Version 1)
Quarter: 2020Q2

REPORT INFORMATION
  Report Type: Spontaneous
  Country: JP (occurrence: JP)
  Receive Date: 20200421
  Receipt Date: 20200421
  Transmission Date: 20200714
  Serious: Yes (Hospitalization)
  Sender: FDA-Public Use
  Company Number: JP-TEVA-2020-JP-1224787

PATIENT
  Age: 29 Year
  Sex: Male
  Weight: 50 kg

DRUGS (9)
  1. TRIMETHOPRIM/SULFAMETHOXAZOLE [Suspect]
     Active Substance: SULFAMETHOXAZOLE\TRIMETHOPRIM
     Indication: ENCEPHALITIS TOXIC
     Dosage: 16/80 MG ON DAY 27
     Route: 048
  2. ATOVAQUONE. [Suspect]
     Active Substance: ATOVAQUONE
     Indication: ENCEPHALITIS TOXIC
     Route: 048
  3. CLINDAMYCIN. [Suspect]
     Active Substance: CLINDAMYCIN
     Route: 048
  4. PYRIMETHAMINE/SULFADIAZINE [Suspect]
     Active Substance: PYRIMETHAMINE\SULFADIAZINE
     Indication: ENCEPHALITIS TOXIC
     Dosage: 200/4000 MG ON THE FIRST DAY AND 50/4000 MG PER DAY ON SUBSEQUENT DAYS
     Route: 065
  5. RALTEGRAVIR. [Suspect]
     Active Substance: RALTEGRAVIR
     Indication: HIV INFECTION
     Route: 065
  6. TENOFOVIR ALAFENAMIDE/EMTRICITABINE [Suspect]
     Active Substance: EMTRICITABINE\TENOFOVIR
     Indication: HIV INFECTION
     Route: 065
  7. CLINDAMYCIN. [Suspect]
     Active Substance: CLINDAMYCIN
     Indication: ENCEPHALITIS TOXIC
     Dosage: 1800 MILLIGRAM DAILY;
     Route: 051
  8. TRIMETHOPRIM/SULFAMETHOXAZOLE [Suspect]
     Active Substance: SULFAMETHOXAZOLE\TRIMETHOPRIM
     Indication: ENCEPHALITIS TOXIC
     Dosage: 1 DOSAGE FORMS DAILY; 1 DOSAGE FORM = 480MG TRIMETHOPRIM + 2400MG SULFAMETHOXAZOLE
     Route: 051
  9. FLUCONAZOLE. [Concomitant]
     Active Substance: FLUCONAZOLE
     Indication: ORAL CANDIDIASIS
     Dosage: 200 MILLIGRAM DAILY;
     Route: 065

REACTIONS (5)
  - Pyrexia [Unknown]
  - Vomiting [Recovered/Resolved]
  - Rash [Recovered/Resolved]
  - Transaminases increased [Recovering/Resolving]
  - Rash morbilliform [Recovering/Resolving]
